FAERS Safety Report 25629372 (Version 1)
Quarter: 2025Q3

REPORT INFORMATION
  Report Type: Spontaneous
  Country: EU (occurrence: EU)
  Receive Date: 20250731
  Receipt Date: 20250731
  Transmission Date: 20251020
  Serious: Yes (Hospitalization)
  Sender: MYLAN
  Company Number: None

PATIENT
  Age: 17 Year
  Sex: Female
  Weight: 55 kg

DRUGS (8)
  1. ACETAMINOPHEN [Suspect]
     Active Substance: ACETAMINOPHEN
     Indication: Product used for unknown indication
     Dates: start: 20250707, end: 20250707
  2. ACETAMINOPHEN [Suspect]
     Active Substance: ACETAMINOPHEN
     Route: 048
     Dates: start: 20250707, end: 20250707
  3. ACETAMINOPHEN [Suspect]
     Active Substance: ACETAMINOPHEN
     Route: 048
     Dates: start: 20250707, end: 20250707
  4. ACETAMINOPHEN [Suspect]
     Active Substance: ACETAMINOPHEN
     Dates: start: 20250707, end: 20250707
  5. KETOPROFEN [Suspect]
     Active Substance: KETOPROFEN
     Indication: Product used for unknown indication
     Dates: start: 20250707, end: 20250707
  6. KETOPROFEN [Suspect]
     Active Substance: KETOPROFEN
     Route: 048
     Dates: start: 20250707, end: 20250707
  7. KETOPROFEN [Suspect]
     Active Substance: KETOPROFEN
     Route: 048
     Dates: start: 20250707, end: 20250707
  8. KETOPROFEN [Suspect]
     Active Substance: KETOPROFEN
     Dates: start: 20250707, end: 20250707

REACTIONS (3)
  - Drug abuse [Not Recovered/Not Resolved]
  - Abdominal pain [Not Recovered/Not Resolved]
  - Intentional overdose [Not Recovered/Not Resolved]

NARRATIVE: CASE EVENT DATE: 20250707
